FAERS Safety Report 7356009-1 (Version None)
Quarter: 2011Q1

REPORT INFORMATION
  Report Type: 
  Country: None (occurrence: None)
  Receive Date: 20110316
  Receipt Date: 20110308
  Transmission Date: 20110831
  Serious: Yes (Death, Other)
  Sender: FDA-Public Use
  Company Number: JP-AMGEN-JPNCT2011014347

PATIENT
  Age: 75 Year
  Sex: Male
  Weight: 58 kg

DRUGS (13)
  1. FLUOROURACIL [Suspect]
     Indication: COLORECTAL CANCER
     Route: 040
     Dates: start: 20101105, end: 20110107
  2. OXALIPLATIN [Suspect]
     Indication: COLORECTAL CANCER
     Route: 041
     Dates: start: 20101105, end: 20110107
  3. CALCIUM LEVOFOLINATE [Concomitant]
     Indication: COLORECTAL CANCER
     Route: 041
     Dates: start: 20101105, end: 20110107
  4. ZANTAC [Concomitant]
     Dosage: UNK
     Route: 042
  5. LANSOPRAZOLE [Concomitant]
     Dosage: UNK
     Route: 048
  6. KYTRIL [Concomitant]
     Dosage: UNK
     Route: 042
  7. MAGMITT [Concomitant]
     Dosage: UNK
     Route: 048
  8. MINOCYCLINE HCL [Concomitant]
     Dosage: UNK
     Route: 048
  9. NAIXAN [Concomitant]
     Dosage: UNK
     Route: 048
  10. ANTIHISTAMINES [Concomitant]
     Indication: PROPHYLAXIS
     Dosage: UNK
     Route: 065
  11. CORTICOSTEROIDS [Concomitant]
     Indication: PROPHYLAXIS
     Dosage: UNK
     Route: 065
  12. PANITUMUMAB [Suspect]
     Indication: COLORECTAL CANCER
     Dosage: 6 MG/KG, Q2WK
     Route: 041
     Dates: start: 20101105, end: 20110107
  13. FLUOROURACIL [Suspect]
     Route: 041
     Dates: start: 20101105, end: 20110107

REACTIONS (9)
  - DERMATITIS ACNEIFORM [None]
  - DYSGEUSIA [None]
  - NEUTROPENIA [None]
  - PLATELET COUNT DECREASED [None]
  - CONSTIPATION [None]
  - COLORECTAL CANCER [None]
  - PARONYCHIA [None]
  - ANAEMIA [None]
  - DECREASED APPETITE [None]
